FAERS Safety Report 9716892 (Version 1)
Quarter: 2013Q4

REPORT INFORMATION
  Report Type: Spontaneous
  Country: US (occurrence: US)
  Receive Date: 20131127
  Receipt Date: 20131127
  Transmission Date: 20140711
  Serious: No
  Sender: FDA-Public Use
  Company Number: US-GILEAD-2009-0019885

PATIENT
  Sex: Female
  Weight: 49.89 kg

DRUGS (6)
  1. LETAIRIS [Suspect]
     Indication: PULMONARY ARTERIAL HYPERTENSION
     Route: 048
     Dates: start: 20081202
  2. MYFORTIC [Concomitant]
  3. CALCIUM WITH D [Concomitant]
  4. PROTONIX [Concomitant]
  5. CIPRO [Concomitant]
  6. ERYTHROMYCIN [Concomitant]

REACTIONS (2)
  - Swelling [Unknown]
  - Weight increased [Unknown]
